FAERS Safety Report 5421533-5 (Version None)
Quarter: 2007Q3

REPORT INFORMATION
  Report Type: 
  Country: None (occurrence: None)
  Receive Date: 20070821
  Receipt Date: 20070809
  Transmission Date: 20080115
  Serious: Yes (Hospitalization)
  Sender: FDA-Public Use
  Company Number: IE-PFIZER INC-2007066806

PATIENT
  Age: 78 Year
  Sex: Female

DRUGS (5)
  1. PHENYTOIN [Interacting]
     Dosage: DAILY DOSE:300MG
  2. SIMVASTATIN [Interacting]
     Dosage: DAILY DOSE:40MG
  3. ASPIRIN [Suspect]
  4. BENDROFLUAZIDE [Suspect]
  5. BISOPROLOL [Suspect]

REACTIONS (5)
  - BLOOD CHOLESTEROL INCREASED [None]
  - COORDINATION ABNORMAL [None]
  - DRUG INTERACTION [None]
  - MEDICATION ERROR [None]
  - THERAPEUTIC AGENT TOXICITY [None]
